FAERS Safety Report 5620959-4 (Version None)
Quarter: 2008Q1

REPORT INFORMATION
  Report Type: 
  Country: None (occurrence: None)
  Receive Date: 20080208
  Receipt Date: 20080129
  Transmission Date: 20080703
  Serious: Yes (Hospitalization)
  Sender: FDA-Public Use
  Company Number: DE-PFIZER INC-2008009542

PATIENT
  Sex: Female

DRUGS (4)
  1. ZELDOX (CAPSULES) [Suspect]
     Indication: ANXIETY
     Route: 048
     Dates: start: 20071123, end: 20071123
  2. ZELDOX (CAPSULES) [Suspect]
     Indication: PSYCHOTIC DISORDER
  3. ZELDOX (CAPSULES) [Suspect]
     Indication: DELUSION
  4. RISPERDAL [Concomitant]
     Route: 048

REACTIONS (4)
  - FRACTURE [None]
  - PANIC ATTACK [None]
  - SELF INJURIOUS BEHAVIOUR [None]
  - SPINAL FRACTURE [None]
